FAERS Safety Report 9068635 (Version 1)
Quarter: 2013Q1

REPORT INFORMATION
  Report Type: Spontaneous
  Country: US (occurrence: None)
  Receive Date: 20130212
  Receipt Date: 20130212
  Transmission Date: 20140127
  Serious: No
  Sender: FDA-Public Use
  Company Number: None

PATIENT
  Age: 52 Year
  Sex: 0

DRUGS (11)
  1. COPAXONE 20MG TEVA [Suspect]
     Dosage: 20MG  DAILY SQ
     Route: 058
     Dates: start: 20120216, end: 20130207
  2. ASPIRIN [Concomitant]
  3. PAMELOR [Concomitant]
  4. PRIMROSE OIL [Concomitant]
  5. PROTONIX [Concomitant]
  6. PROVIGIL [Concomitant]
  7. TOPAMAX [Concomitant]
  8. VITAMIN B [Concomitant]
  9. VITAMIN C [Concomitant]
  10. VITAMIN D [Concomitant]
  11. ZYRTEC [Concomitant]

REACTIONS (1)
  - Bursitis [None]
